FAERS Safety Report 5094685-7 (Version None)
Quarter: 2006Q3

REPORT INFORMATION
  Report Type: 
  Country: None (occurrence: None)
  Receive Date: 20060731
  Receipt Date: 20060420
  Transmission Date: 20061208
  Serious: No
  Sender: FDA-Public Use
  Company Number: 2006PV012461

PATIENT
  Age: 49 Year
  Sex: Male

DRUGS (1)
  1. BYETTA [Suspect]
     Indication: DRUG USE FOR UNKNOWN INDICATION
     Dosage: 10 MCG;BID;SC
     Route: 058

REACTIONS (5)
  - ASTHENIA [None]
  - INJECTION SITE HAEMORRHAGE [None]
  - INJECTION SITE HYPERSENSITIVITY [None]
  - THERAPEUTIC RESPONSE UNEXPECTED [None]
  - WEIGHT DECREASED [None]
